FAERS Safety Report 8406047-2 (Version None)
Quarter: 2012Q2

REPORT INFORMATION
  Report Type: 
  Country: None (occurrence: None)
  Receive Date: 20120604
  Receipt Date: 20120524
  Transmission Date: 20120825
  Serious: Yes (Hospitalization, Other)
  Sender: FDA-Public Use
  Company Number: US-JNJFOC-20120402184

PATIENT
  Sex: Female

DRUGS (2)
  1. LEVAQUIN [Suspect]
     Indication: DIVERTICULITIS
     Route: 048
     Dates: start: 20080701
  2. LEVAQUIN [Suspect]
     Route: 042

REACTIONS (4)
  - ROTATOR CUFF SYNDROME [None]
  - JOINT INJURY [None]
  - DEPRESSION [None]
  - TENDONITIS [None]
